FAERS Safety Report 7529986-3 (Version None)
Quarter: 2011Q2

REPORT INFORMATION
  Report Type: 
  Country: None (occurrence: None)
  Receive Date: 20110606
  Receipt Date: 20110606
  Transmission Date: 20111010
  Serious: Yes (Hospitalization)
  Sender: FDA-Public Use
  Company Number: None

PATIENT
  Sex: Male
  Weight: 73.9 kg

DRUGS (9)
  1. LEVEMIR [Concomitant]
  2. COMPAZINE [Concomitant]
  3. COLACE [Concomitant]
  4. DECADRON [Concomitant]
  5. DIOVAN [Concomitant]
  6. GLUCOPHAGE XR [Concomitant]
  7. BYSTOLIC [Concomitant]
  8. BAFETINIB 120MG [Suspect]
     Indication: GLIOBLASTOMA
     Dosage: 240MG TWICE DAILY PO
     Route: 048
     Dates: start: 20101223
  9. SYNTHROID [Concomitant]

REACTIONS (2)
  - CONVULSION [None]
  - BRAIN OEDEMA [None]
